FAERS Safety Report 16446876 (Version 1)
Quarter: 2019Q2

REPORT INFORMATION
  Report Type: Spontaneous
  Country: US (occurrence: US)
  Receive Date: 20190618
  Receipt Date: 20190618
  Transmission Date: 20190711
  Serious: No
  Sender: FDA-Public Use
  Company Number: US-009507513-1906USA006793

PATIENT
  Sex: Male

DRUGS (1)
  1. PREGNYL [Suspect]
     Active Substance: CHORIOGONADOTROPIN ALFA
     Dosage: STRENGTH: 10 (UNITS NOT REPORTED)
     Route: 058

REACTIONS (2)
  - Incorrect route of product administration [Unknown]
  - Product prescribing error [Unknown]
